FAERS Safety Report 10518945 (Version 1)
Quarter: 2014Q4

REPORT INFORMATION
  Report Type: Spontaneous
  Country: US (occurrence: US)
  Receive Date: 20141015
  Receipt Date: 20141015
  Transmission Date: 20150528
  Serious: No
  Sender: FDA-Public Use
  Company Number: US-TARO-2014P1000914

PATIENT
  Age: 67 Year
  Sex: Female
  Weight: 74.84 kg

DRUGS (6)
  1. MELOXICAM. [Concomitant]
     Active Substance: MELOXICAM
     Dosage: QD
  2. ESTRADIOL. [Concomitant]
     Active Substance: ESTRADIOL
  3. OMEPRAZOLE. [Concomitant]
     Active Substance: OMEPRAZOLE
     Dosage: QD
  4. AMBIEN [Concomitant]
     Active Substance: ZOLPIDEM TARTRATE
     Dosage: HS
  5. BENICAR [Concomitant]
     Active Substance: OLMESARTAN MEDOXOMIL
     Dosage: QD
  6. HYDROCORTISONE VALERATE OINTMENT 0.2% [Suspect]
     Active Substance: HYDROCORTISONE VALERATE
     Indication: PSORIASIS
     Dosage: X1
     Route: 061
     Dates: start: 20140124, end: 20140124

REACTIONS (1)
  - Skin tightness [Not Recovered/Not Resolved]

NARRATIVE: CASE EVENT DATE: 20140124
